FAERS Safety Report 5051139-1 (Version None)
Quarter: 2006Q3

REPORT INFORMATION
  Report Type: 
  Country: None (occurrence: None)
  Receive Date: 20060710
  Receipt Date: 20060628
  Transmission Date: 20061208
  Serious: Yes (Other)
  Sender: FDA-Public Use
  Company Number: 2006082439

PATIENT
  Age: 44 Year
  Sex: Female

DRUGS (1)
  1. GEODON [Suspect]
     Indication: SCHIZOAFFECTIVE DISORDER

REACTIONS (2)
  - BLOOD CREATINE PHOSPHOKINASE INCREASED [None]
  - MUSCULOSKELETAL STIFFNESS [None]
